FAERS Safety Report 16550732 (Version 1)
Quarter: 2019Q3

REPORT INFORMATION
  Report Type: Spontaneous
  Country: None (occurrence: US)
  Receive Date: 20190710
  Receipt Date: 20190710
  Transmission Date: 20191004
  Serious: No
  Sender: FDA-Public Use
  Company Number: US-JIANGSU HENGRUI MEDICINE CO., LTD.-2070592

PATIENT

DRUGS (4)
  1. CYCLOPHOSPHAMIDE FOR INJECTION USP, 500 MG, 1 G AND 2 G PER SINGLE-DOS [Suspect]
     Active Substance: CYCLOPHOSPHAMIDE
     Indication: GLIOBLASTOMA
  2. ETOPOSIDE. [Concomitant]
     Active Substance: ETOPOSIDE
  3. CELEBREX [Concomitant]
     Active Substance: CELECOXIB
  4. TRAMETINIB [Concomitant]
     Active Substance: TRAMETINIB

REACTIONS (2)
  - Disease progression [Unknown]
  - Drug ineffective [Unknown]
